FAERS Safety Report 9990730 (Version 1)
Quarter: 2014Q1

REPORT INFORMATION
  Report Type: Spontaneous
  Country: US (occurrence: None)
  Receive Date: 20140307
  Receipt Date: 20140307
  Transmission Date: 20141002
  Serious: Yes (Hospitalization)
  Sender: FDA-Public Use
  Company Number: None

PATIENT
  Age: 56 Year
  Sex: Female
  Weight: 62.3 kg

DRUGS (12)
  1. NULOJIX [Suspect]
     Indication: RENAL TRANSPLANT
     Dosage: Q 4 WEEKS
     Route: 042
     Dates: start: 20131230
  2. CELLCEPT [Suspect]
     Indication: RENAL TRANSPLANT
     Route: 048
     Dates: start: 20131231
  3. ALEMTUZUMAB [Concomitant]
  4. BELATACEPT [Concomitant]
  5. METHYLPREDNISONE [Concomitant]
  6. ACYCLOVIR [Concomitant]
  7. CLOMITRAZOLE [Concomitant]
  8. ARANSEP [Concomitant]
  9. CRESTOR [Concomitant]
  10. ERGOCALCIFEROL [Concomitant]
  11. FOLIC ACID [Concomitant]
  12. PANTOPROZOLE [Concomitant]

REACTIONS (5)
  - Anaemia [None]
  - Diarrhoea [None]
  - Cytomegalovirus colitis [None]
  - Unevaluable event [None]
  - Cytomegalovirus viraemia [None]
